FAERS Safety Report 8067920-0 (Version None)
Quarter: 2012Q1

REPORT INFORMATION
  Report Type: 
  Country: None (occurrence: None)
  Receive Date: 20120124
  Receipt Date: 20110913
  Transmission Date: 20120608
  Serious: No
  Sender: FDA-Public Use
  Company Number: US-AMGEN-USASP2011046882

PATIENT
  Age: 84 Year
  Sex: Female

DRUGS (11)
  1. FISH OIL [Concomitant]
  2. OMEPRAZOLE [Concomitant]
  3. PROLIA [Suspect]
     Indication: OSTEOPOROSIS POSTMENOPAUSAL
     Dosage: 60 MG, Q6MO
     Dates: start: 20110801
  4. VITAMIN D [Concomitant]
  5. SPIRONOLACTONE [Concomitant]
  6. CALCIUM [Concomitant]
  7. SPIRIVA [Concomitant]
  8. VAGIFEM [Concomitant]
  9. SYNTHROID [Concomitant]
  10. RESTASIS [Concomitant]
  11. ASPIRIN [Concomitant]

REACTIONS (5)
  - PAIN [None]
  - CHEST DISCOMFORT [None]
  - BACK PAIN [None]
  - MUSCULOSKELETAL PAIN [None]
  - SINUSITIS [None]
